FAERS Safety Report 8397269-8 (Version None)
Quarter: 2012Q2

REPORT INFORMATION
  Report Type: 
  Country: None (occurrence: None)
  Receive Date: 20120531
  Receipt Date: 20120529
  Transmission Date: 20120825
  Serious: Yes (Death, Hospitalization)
  Sender: FDA-Public Use
  Company Number: US-AMGEN-USASP2011041356

PATIENT
  Age: 56 Year
  Sex: Male
  Weight: 79.365 kg

DRUGS (5)
  1. POTASSIUM CHLORIDE [Concomitant]
     Dosage: 40 MEQ, QD
     Route: 048
  2. LEVAQUIN [Concomitant]
     Dosage: 75 MG, QD
     Route: 048
  3. BACTRIM DS [Concomitant]
     Dosage: UNK UNK, 3 TIMES/WK
     Route: 048
  4. NPLATE [Suspect]
     Indication: IDIOPATHIC THROMBOCYTOPENIC PURPURA
     Dosage: 90 MUG, QWK
     Route: 058
     Dates: start: 20110630, end: 20110714
  5. PREDNISONE TAB [Concomitant]
     Dosage: 20 MG, QD
     Route: 048

REACTIONS (1)
  - SUBARACHNOID HAEMORRHAGE [None]
